FAERS Safety Report 5824141-7 (Version None)
Quarter: 2008Q3

REPORT INFORMATION
  Report Type: 
  Country: None (occurrence: None)
  Receive Date: 20080728
  Receipt Date: 20080717
  Transmission Date: 20090109
  Serious: Yes (Other)
  Sender: FDA-Public Use
  Company Number: US-ROCHE-576855

PATIENT
  Sex: Female

DRUGS (1)
  1. ACCUTANE [Suspect]
     Indication: ACNE
     Route: 065
     Dates: start: 19990203, end: 19990701

REACTIONS (2)
  - ABORTION MISSED [None]
  - DRUG EXPOSURE DURING PREGNANCY [None]
